FAERS Safety Report 10422552 (Version 1)
Quarter: 2014Q3

REPORT INFORMATION
  Report Type: Report from Study
  Country: BR (occurrence: BR)
  Receive Date: 20140901
  Receipt Date: 20140901
  Transmission Date: 20150326
  Serious: Yes (Other)
  Sender: FDA-Public Use
  Company Number: PHHY2014BR106772

PATIENT
  Age: 56 Year
  Sex: Male

DRUGS (6)
  1. THYMOGLOBULIN [Concomitant]
     Active Substance: LAPINE T-LYMPHOCYTE IMMUNE GLOBULIN
     Dosage: UNK
  2. TACROLIMUS. [Suspect]
     Active Substance: TACROLIMUS
     Indication: IMMUNOSUPPRESSION
     Dosage: UNK
  3. SOLU-MEDROL [Concomitant]
     Active Substance: METHYLPREDNISOLONE SODIUM SUCCINATE
     Dosage: UNK
  4. MYFORTIC [Suspect]
     Active Substance: MYCOPHENOLATE SODIUM
     Indication: IMMUNOSUPPRESSION
     Dosage: UNK
  5. PREDNISONE. [Suspect]
     Active Substance: PREDNISONE
     Dosage: UNK
  6. IMMUNOGLOBULIN//IMMUNOGLOBULINS NOS [Concomitant]
     Dosage: UNK

REACTIONS (11)
  - Klebsiella infection [Unknown]
  - Platelet count decreased [Unknown]
  - Complications of transplanted kidney [Unknown]
  - Haemoglobin decreased [Unknown]
  - Haematocrit decreased [Unknown]
  - Glomerulosclerosis [Unknown]
  - Immunosuppressant drug level decreased [Unknown]
  - Renal tubular necrosis [Unknown]
  - Pseudomonas infection [Unknown]
  - Morganella infection [Unknown]
  - Renal cortical necrosis [Unknown]
